FAERS Safety Report 19420295 (Version 5)
Quarter: 2021Q4

REPORT INFORMATION
  Report Type: Spontaneous
  Country: CA (occurrence: CA)
  Receive Date: 20210616
  Receipt Date: 20211207
  Transmission Date: 20220303
  Serious: Yes (Death, Other)
  Sender: FDA-Public Use
  Company Number: CA-AUROBINDO-AUR-APL-2021-024414

PATIENT
  Age: 80 Year
  Sex: Male
  Weight: 69 kg

DRUGS (77)
  1. GABAPENTIN [Suspect]
     Active Substance: GABAPENTIN
     Indication: Neuralgia
     Dosage: 100 MILLIGRAM, ONCE A DAY
     Route: 048
  2. METRONIDAZOLE [Suspect]
     Active Substance: METRONIDAZOLE
     Indication: Bacterial infection
     Dosage: 500 MILLIGRAM, 3 TIMES A DAY
     Route: 048
  3. METRONIDAZOLE [Suspect]
     Active Substance: METRONIDAZOLE
     Dosage: 500 MILLIGRAM, ONCE A DAY
     Route: 048
  4. ONDANSETRON [Suspect]
     Active Substance: ONDANSETRON
     Indication: Nausea
     Dosage: 12 MILLIGRAM (3 TIMES A DAY)
     Route: 042
  5. ONDANSETRON [Suspect]
     Active Substance: ONDANSETRON
     Indication: Vomiting
     Dosage: 4 MILLIGRAM, ONCE A DAY
     Route: 042
  6. SIMVASTATIN [Suspect]
     Active Substance: SIMVASTATIN
     Indication: Thrombosis
     Dosage: 40 MILLIGRAM, ONCE A DAY
     Route: 048
  7. SIMVASTATIN [Suspect]
     Active Substance: SIMVASTATIN
     Indication: Blood cholesterol increased
  8. ACETAMINOPHEN [Suspect]
     Active Substance: ACETAMINOPHEN
     Indication: Analgesic therapy
     Dosage: 650 MILLIGRAM, ONCE A DAY
     Route: 048
  9. ALLOPURINOL [Suspect]
     Active Substance: ALLOPURINOL
     Indication: Blood uric acid increased
     Dosage: 100 MILLIGRAM
     Route: 048
  10. AMIODARONE HYDROCHLORIDE [Suspect]
     Active Substance: AMIODARONE HYDROCHLORIDE
     Indication: Ventricular fibrillation
     Dosage: UNK
     Route: 042
  11. AMIODARONE HYDROCHLORIDE [Suspect]
     Active Substance: AMIODARONE HYDROCHLORIDE
     Indication: Drug therapy
     Dosage: 150 MILLIGRAM, ONCE A DAY
     Route: 042
  12. ARANESP [Suspect]
     Active Substance: DARBEPOETIN ALFA
     Indication: Anaemia
     Dosage: 10 MICROGRAM, CYCLICAL
     Route: 042
  13. ARANESP [Suspect]
     Active Substance: DARBEPOETIN ALFA
     Dosage: 1.42 MILLIGRAM, ONCE A WEEK
     Route: 042
  14. ARANESP [Suspect]
     Active Substance: DARBEPOETIN ALFA
     Dosage: 0.71 MICROGRAM, ONCE EVERY 2 WEEKS
     Route: 042
  15. ARANESP [Suspect]
     Active Substance: DARBEPOETIN ALFA
     Dosage: 10 MICROGRAM, ONCE EVERY 2 WEEK
     Route: 042
  16. BETAMETHASONE [Suspect]
     Active Substance: BETAMETHASONE
     Indication: Swelling
     Dosage: UNK, AS REQUIRED
     Route: 061
  17. DULCOLAX NOS [Suspect]
     Active Substance: BISACODYL OR DOCUSATE SODIUM
     Indication: Constipation
     Dosage: 10 MILLIGRAM, AS REUIRED
     Route: 054
  18. CALCITRIOL [Suspect]
     Active Substance: CALCITRIOL
     Indication: Vitamin D
     Dosage: 0.25 MILLIGRAM, ONCE A DAY
     Route: 048
  19. CEFTRIAXONE SODIUM [Suspect]
     Active Substance: CEFTRIAXONE SODIUM
     Indication: Bacterial infection
     Dosage: 2 GRAM, ONCE A DAY
     Route: 042
  20. FRAGMIN [Suspect]
     Active Substance: DALTEPARIN SODIUM
     Indication: Pulmonary embolism
     Dosage: UNK
     Route: 065
  21. DEXTROSE [Suspect]
     Active Substance: DEXTROSE
     Indication: Nutritional supplementation
     Dosage: 12.5 GRAM, AS REQUIRED
     Route: 042
  22. DOBUTAMINE HYDROCHLORIDE [Suspect]
     Active Substance: DOBUTAMINE HYDROCHLORIDE
     Indication: Cardiogenic shock
     Dosage: UNK
     Route: 042
  23. FERRLECIT [Suspect]
     Active Substance: SODIUM FERRIC GLUCONATE COMPLEX
     Indication: Iron deficiency
     Dosage: 4.64 MILLIGRAM, EVERY 4 WEEKS
     Route: 042
  24. FIASP [Suspect]
     Active Substance: INSULIN ASPART
     Indication: Diabetes mellitus
     Dosage: UNK
     Route: 058
  25. FOSRENOL [Suspect]
     Active Substance: LANTHANUM CARBONATE
     Indication: Blood phosphorus increased
     Dosage: 500 MILLIGRAM, AS REQUIRED
     Route: 048
  26. DEXTROSE [Suspect]
     Active Substance: DEXTROSE
     Indication: Nutritional supplementation
     Dosage: 12.5 GRAM, AS REQUIRED
     Route: 042
  27. DEXTROSE [Suspect]
     Active Substance: DEXTROSE
     Dosage: 1.25 GRAM
     Route: 042
  28. HEPARIN SODIUM [Suspect]
     Active Substance: HEPARIN SODIUM
     Indication: Anticoagulant therapy
     Dosage: 50 MILLILITER, AS REQUIRED
     Route: 042
  29. HYDROMORPHONE HYDROCHLORIDE [Suspect]
     Active Substance: HYDROMORPHONE HYDROCHLORIDE
     Indication: Analgesic therapy
     Dosage: 1 MILLIGRAM, 6 EVERY 1 DAY
     Route: 058
  30. HYDROMORPHONE HYDROCHLORIDE [Suspect]
     Active Substance: HYDROMORPHONE HYDROCHLORIDE
     Dosage: 1 MILLIGRAM, ONCE A DAY
     Route: 058
  31. HYDROMORPHONE HYDROCHLORIDE [Suspect]
     Active Substance: HYDROMORPHONE HYDROCHLORIDE
     Dosage: 6 MILLIGRAM, FOUR TIMES ADAY
     Route: 058
  32. IPRATROPIUM [Suspect]
     Active Substance: IPRATROPIUM
     Indication: Dyspnoea
     Dosage: UNK UNK, FOUR TIMES/DAY
  33. IPRATROPIUM [Suspect]
     Active Substance: IPRATROPIUM
     Dosage: 1 DOSAGE FORM, ONCE A DAY
  34. LANSOPRAZOLE [Suspect]
     Active Substance: LANSOPRAZOLE
     Indication: Antacid therapy
     Dosage: 30 MILLIGRAM, ONCE A DAY
     Route: 048
  35. MELATONIN [Suspect]
     Active Substance: MELATONIN
     Indication: Sleep disorder therapy
     Dosage: 3 MILLIGRAM, ONCE A DAY
     Route: 048
  36. NOREPINEPHRINE BITARTRATE [Suspect]
     Active Substance: NOREPINEPHRINE BITARTRATE
     Indication: Stress
     Dosage: UNK
     Route: 042
  37. ONDANSETRON [Suspect]
     Active Substance: ONDANSETRON
     Indication: Vomiting
     Dosage: 40 MILLIGRAM, 3 TIMES A DAY
     Route: 042
  38. ONDANSETRON [Suspect]
     Active Substance: ONDANSETRON
     Indication: Nausea
     Dosage: 4 MILLIGRAM, 3 TIMES A DAY
     Route: 042
  39. ALBUTEROL [Suspect]
     Active Substance: ALBUTEROL
     Indication: Chronic obstructive pulmonary disease
     Dosage: UNK, ONCE EVERY 5 HOURS
  40. ALBUTEROL [Suspect]
     Active Substance: ALBUTEROL
     Dosage: UNK, ONCE A DAY
  41. OTRIVIN [Suspect]
     Active Substance: XYLOMETAZOLINE
     Indication: Dyspnoea
     Dosage: UNK
  42. POLYETHYLENE GLYCOL [Suspect]
     Active Substance: POLYETHYLENE GLYCOL
     Indication: Constipation
     Dosage: 17 GRAM, ONCE A DAY
     Route: 048
  43. PHYTONADIONE [Suspect]
     Active Substance: PHYTONADIONE
     Indication: Vitamin supplementation
     Dosage: 5 MILLIGRAM, AS REQUIRED
     Route: 042
  44. PYRIDOXINE [Suspect]
     Active Substance: PYRIDOXINE
     Indication: Vitamin supplementation
     Dosage: UNK
     Route: 048
  45. TRISODIUM CITRATE DIHYDRATE [Suspect]
     Active Substance: TRISODIUM CITRATE DIHYDRATE
     Indication: Thrombosis
     Dosage: 2.5 MILLILITER, AS REUIRED
     Route: 065
  46. BISACODYL [Suspect]
     Active Substance: BISACODYL
     Indication: Constipation
     Dosage: 10 MILLIGRAM
     Route: 065
  47. SODIUM PHOSPHATE, MONOBASIC [Suspect]
     Active Substance: SODIUM PHOSPHATE, MONOBASIC
     Indication: Constipation
     Dosage: 133 MILLILITER
     Route: 054
  48. TRESIBA [Suspect]
     Active Substance: INSULIN DEGLUDEC
     Indication: Diabetes mellitus
     Dosage: UNK
     Route: 058
  49. UMECLIDINIUM BROMIDE\VILANTEROL TRIFENATATE [Suspect]
     Active Substance: UMECLIDINIUM BROMIDE\VILANTEROL TRIFENATATE
     Indication: Dyspnoea
     Dosage: 1 INTERNATIONAL UNIT
     Route: 048
  50. VASOPRESSIN [Suspect]
     Active Substance: VASOPRESSIN
     Indication: Drug therapy
     Dosage: UNK
     Route: 042
  51. VILANTEROL TRIFENATATE [Suspect]
     Active Substance: VILANTEROL TRIFENATATE
     Indication: Product used for unknown indication
     Dosage: UNK
     Route: 065
  52. WARFARIN [Suspect]
     Active Substance: WARFARIN
     Indication: Thrombosis
     Dosage: 2 MILLIGRAM
     Route: 048
  53. WARFARIN [Suspect]
     Active Substance: WARFARIN
     Dosage: 2 GRAM, ONCE A DAY
     Route: 048
  54. DALTEPARIN SODIUM [Suspect]
     Active Substance: DALTEPARIN SODIUM
     Indication: Pulmonary embolism
     Dosage: UNK
     Route: 065
  55. INSULIN ASPART [Suspect]
     Active Substance: INSULIN ASPART
     Indication: Diabetes mellitus
     Dosage: UNK
     Route: 058
  56. INSULIN DEGLUDEC [Suspect]
     Active Substance: INSULIN DEGLUDEC
     Indication: Diabetes mellitus
     Dosage: UNK
     Route: 058
  57. LANTHANUM CARBONATE [Suspect]
     Active Substance: LANTHANUM CARBONATE
     Indication: Hyperphosphataemia
     Dosage: 500 MILLIGRAM
     Route: 048
  58. LANTHANUM CARBONATE [Suspect]
     Active Substance: LANTHANUM CARBONATE
     Indication: Blood phosphorus increased
  59. POLYETHYLENE GLYCOL 3350 [Suspect]
     Active Substance: POLYETHYLENE GLYCOL 3350
     Indication: Constipation
     Dosage: 17 GRAM ONCE A DAY
     Route: 048
  60. XYLOMETAZOLINE HYDROCHLORIDE [Suspect]
     Active Substance: XYLOMETAZOLINE HYDROCHLORIDE
     Indication: Dyspnoea
     Dosage: UNK
  61. ATROVENT [Suspect]
     Active Substance: IPRATROPIUM BROMIDE
     Indication: Sleep disorder therapy
     Dosage: UNK UNK, FOUR TIMES/DAY
  62. ATROVENT [Suspect]
     Active Substance: IPRATROPIUM BROMIDE
     Indication: Dyspnoea
  63. CHLORAMPHENICOL\HYDROCORTISONE ACETATE\METRONIDAZOLE\NYSTATIN [Suspect]
     Active Substance: CHLORAMPHENICOL\HYDROCORTISONE ACETATE\METRONIDAZOLE\NYSTATIN
     Indication: Anaemia
     Dosage: 1500 MILLIGRAM
     Route: 065
  64. DIPYRONE [Suspect]
     Active Substance: DIPYRONE
     Indication: Vitamin supplementation
     Dosage: UNK
     Route: 042
  65. DISTIGMINE BROMIDE [Suspect]
     Active Substance: DISTIGMINE BROMIDE
     Indication: Dyspnoea
     Dosage: 1 INTERNATIONAL UNIT, ONCE A DAY
     Route: 048
  66. FLUTICASONE FUROATE\VILANTEROL TRIFENATATE [Suspect]
     Active Substance: FLUTICASONE FUROATE\VILANTEROL TRIFENATATE
     Indication: Product used for unknown indication
     Dosage: UNK
     Route: 065
  67. POLYETHYLENE GLYCOLS [Suspect]
     Active Substance: POLYETHYLENE GLYCOLS
     Indication: Constipation
     Dosage: 17 MILLIGRAM, ONCE A DAY
     Route: 048
  68. POLYETHYLENE GLYCOLS [Suspect]
     Active Substance: POLYETHYLENE GLYCOLS
     Dosage: 17 GRAM
     Route: 048
  69. POLYETHYLENE GLYCOLS [Suspect]
     Active Substance: POLYETHYLENE GLYCOLS
     Dosage: UNK, ONCE A DAY
     Route: 048
  70. OSELTAMIVIR PHOSPHATE [Suspect]
     Active Substance: OSELTAMIVIR PHOSPHATE
     Indication: Product used for unknown indication
     Dosage: 133 MILLILITER
     Route: 054
  71. HERBALS\PAULLINIA CUPANA SEED [Suspect]
     Active Substance: HERBALS\PAULLINIA CUPANA SEED
     Indication: Nutritional supplementation
     Dosage: 12.5 MILLIGRAM
     Route: 042
  72. SODIUM PICOSULFATE [Suspect]
     Active Substance: SODIUM PICOSULFATE
     Indication: Constipation
     Dosage: 10 MILLIGRAM
     Route: 054
  73. ARANESP [Suspect]
     Active Substance: DARBEPOETIN ALFA
     Indication: Anaemia
     Dosage: 10 MILLIGRAM, 1 EVERY 2 WEEKS
     Route: 042
  74. ARANESP [Suspect]
     Active Substance: DARBEPOETIN ALFA
     Dosage: 0.71 MICROGRAM, 1 EVERY 2 WEEKS
     Route: 042
  75. BETA CAROTENE [Concomitant]
     Active Substance: BETA CAROTENE
     Indication: Product used for unknown indication
     Dosage: UNK
     Route: 065
  76. VITAMIN C [Concomitant]
     Active Substance: ASCORBIC ACID
     Indication: Product used for unknown indication
     Dosage: UNK
     Route: 065
  77. POTASSIUM CHLORIDE [Concomitant]
     Active Substance: POTASSIUM CHLORIDE
     Indication: Product used for unknown indication
     Dosage: UNK
     Route: 065

REACTIONS (16)
  - Abdominal distension [Fatal]
  - Abdominal pain [Fatal]
  - Appendicitis [Fatal]
  - Appendicolith [Fatal]
  - Ascites [Fatal]
  - Cardiogenic shock [Fatal]
  - Constipation [Fatal]
  - General physical health deterioration [Fatal]
  - Hyponatraemia [Fatal]
  - Multiple organ dysfunction syndrome [Fatal]
  - Nausea [Fatal]
  - Stress [Fatal]
  - Vomiting [Fatal]
  - Sepsis [Fatal]
  - Off label use [Fatal]
  - Ventricular fibrillation [Fatal]
